FAERS Safety Report 4310774-6 (Version None)
Quarter: 2004Q1

REPORT INFORMATION
  Report Type: 
  Country: None (occurrence: None)
  Receive Date: 20040303
  Receipt Date: 20040228
  Transmission Date: 20041129
  Serious: Yes (Death, Hospitalization)
  Sender: FDA-Public Use
  Company Number: WAES 0403USA00093

PATIENT
  Age: 14 Year
  Sex: Female

DRUGS (2)
  1. ALBENDAZOLE [Suspect]
  2. STROMECTOL [Suspect]
     Route: 048

REACTIONS (3)
  - DEATH [None]
  - RASH [None]
  - SKIN ULCER [None]
